FAERS Safety Report 13589833 (Version 8)
Quarter: 2018Q2

REPORT INFORMATION
  Report Type: Report from Study
  Country: None (occurrence: US)
  Receive Date: 20170529
  Receipt Date: 20180629
  Transmission Date: 20180711
  Serious: Yes (Hospitalization, Other)
  Sender: FDA-Public Use
  Company Number: US-ABBVIE-16K-163-1584398-00

PATIENT
  Age: 38 Year
  Sex: Male

DRUGS (6)
  1. HUMIRA [Suspect]
     Active Substance: ADALIMUMAB
     Indication: CROHN^S DISEASE
     Route: 058
     Dates: start: 20160311, end: 20160311
  2. LISINOPRIL. [Concomitant]
     Active Substance: LISINOPRIL
     Indication: HYPERTENSION
  3. METOPROLOL. [Concomitant]
     Active Substance: METOPROLOL
     Indication: HYPERTENSION
  4. HUMIRA [Suspect]
     Active Substance: ADALIMUMAB
     Route: 058
     Dates: start: 201608, end: 201611
  5. HUMIRA [Suspect]
     Active Substance: ADALIMUMAB
     Route: 058
     Dates: start: 201611
  6. HUMIRA [Suspect]
     Active Substance: ADALIMUMAB
     Route: 058
     Dates: start: 2016, end: 201608

REACTIONS (37)
  - Weight decreased [Not Recovered/Not Resolved]
  - Hypersensitivity [Unknown]
  - Influenza [Unknown]
  - Abdominal pain [Not Recovered/Not Resolved]
  - Fistula [Recovered/Resolved]
  - Vitamin B12 decreased [Unknown]
  - Hiatus hernia [Unknown]
  - Anal incontinence [Unknown]
  - Frequent bowel movements [Unknown]
  - Neuralgia [Not Recovered/Not Resolved]
  - Impaired driving ability [Unknown]
  - Irritable bowel syndrome [Unknown]
  - Hypertension [Unknown]
  - Malaise [Unknown]
  - Eye swelling [Unknown]
  - Visual acuity reduced [Unknown]
  - Discomfort [Unknown]
  - Gait disturbance [Not Recovered/Not Resolved]
  - Fatigue [Not Recovered/Not Resolved]
  - Sneezing [Unknown]
  - Abdominal hernia [Unknown]
  - Allergic oedema [Unknown]
  - Nasopharyngitis [Unknown]
  - Drug effect incomplete [Unknown]
  - Fistula [Recovered/Resolved]
  - Somnolence [Unknown]
  - Lethargy [Unknown]
  - Abdominal distension [Unknown]
  - Crohn^s disease [Recovered/Resolved]
  - Abdominal pain [Unknown]
  - Hypophagia [Not Recovered/Not Resolved]
  - Gastrointestinal haemorrhage [Unknown]
  - Rhinalgia [Unknown]
  - Crohn^s disease [Unknown]
  - Defaecation urgency [Unknown]
  - Lower respiratory tract infection [Unknown]
  - Dyspepsia [Not Recovered/Not Resolved]

NARRATIVE: CASE EVENT DATE: 2016
